FAERS Safety Report 12664722 (Version 1)
Quarter: 2016Q3

REPORT INFORMATION
  Report Type: Spontaneous
  Country: US (occurrence: US)
  Receive Date: 20160818
  Receipt Date: 20160818
  Transmission Date: 20161109
  Serious: No
  Sender: FDA-Public Use
  Company Number: US-TAKEDA-2016TUS014168

PATIENT

DRUGS (1)
  1. BRINTELLIX [Suspect]
     Active Substance: VORTIOXETINE HYDROBROMIDE
     Indication: PRODUCT USED FOR UNKNOWN INDICATION
     Dosage: 10 MG, UNK
     Route: 065

REACTIONS (8)
  - Fatigue [Unknown]
  - Headache [Unknown]
  - Impaired work ability [Unknown]
  - Vomiting [Unknown]
  - Weight increased [Unknown]
  - Bradyphrenia [Unknown]
  - Memory impairment [Unknown]
  - Speech disorder [Unknown]
